FAERS Safety Report 16912875 (Version 1)
Quarter: 2019Q4

REPORT INFORMATION
  Report Type: Spontaneous
  Country: GB (occurrence: GB)
  Receive Date: 20191014
  Receipt Date: 20191014
  Transmission Date: 20200122
  Serious: Yes (Other)
  Sender: FDA-Public Use
  Company Number: GB-009507513-1910GBR007082

PATIENT
  Age: 70 Year
  Sex: Female
  Weight: 43 kg

DRUGS (15)
  1. PEMBROLIZUMAB. [Suspect]
     Active Substance: PEMBROLIZUMAB
     Dosage: 100MG/4ML
     Dates: end: 20190415
  2. ACIDEX (ALUMINUM HYDROXIDE (+) DIMETHICONE (+) MAGNESIUM CARBONATE (+) [Concomitant]
     Dosage: TAKE TWO TO FOUR X5ML SPOONFULS 4 TIMES/DAY
     Dates: start: 20180725
  3. CALCIUM CARBONATE. [Concomitant]
     Active Substance: CALCIUM CARBONATE
     Dosage: 2 DOSAGE FORM, QD
     Dates: start: 20170630
  4. CARBOCYSTEINE [Concomitant]
     Active Substance: CARBOCYSTEINE
     Dosage: 6 DOSAGE FORM, QD
     Dates: start: 20170630
  5. THIAMINE. [Concomitant]
     Active Substance: THIAMINE
     Dosage: 3 DOSAGE FORM, QD
     Dates: start: 20170630
  6. FENTANYL. [Concomitant]
     Active Substance: FENTANYL
     Dosage: 1 DOSAGE FORM, Q3D
     Route: 062
     Dates: start: 20180927
  7. ORAMORPH [Concomitant]
     Active Substance: MORPHINE SULFATE
     Indication: PAIN
     Dosage: 5ML - 10ML   4 HOURLY AS NEEDED
     Dates: start: 20180807
  8. BIOXTRA MOUTH RINSE [Concomitant]
     Dosage: USE AS DIRECTED
     Dates: start: 20180904
  9. PARACETAMOL TABLETS BP [Concomitant]
     Active Substance: ACETAMINOPHEN
     Dosage: TAKE ONE TABLET UP TO FOUR TIMES EACH DAY
     Dates: start: 20180927
  10. UMECLIDINIUM [Concomitant]
     Active Substance: UMECLIDINIUM BROMIDE
     Dosage: 1 DOSAGE FORM, QD
     Route: 055
     Dates: start: 20170818
  11. DOCUSATE SODIUM. [Concomitant]
     Active Substance: DOCUSATE SODIUM
     Dosage: 2 DOSAGE FORM, QD
     Dates: start: 20180906
  12. CETIRIZINE HYDROCHLORIDE. [Concomitant]
     Active Substance: CETIRIZINE HYDROCHLORIDE
     Dosage: 1 DOSAGE FORM, QD
     Dates: start: 20181123
  13. FLUTICASONE FUROATE [Concomitant]
     Active Substance: FLUTICASONE FUROATE
     Dosage: 1 DOSAGE FORM, QD
     Route: 055
     Dates: start: 20170818
  14. SODIUM CHLORIDE. [Concomitant]
     Active Substance: SODIUM CHLORIDE
     Dosage: USE AS DIRECTED BY HOSPITAL
     Dates: start: 20180912
  15. COSMOCOL [Concomitant]
     Indication: CONSTIPATION
     Dosage: USE AS DIRECTED
     Dates: start: 20180725

REACTIONS (4)
  - Dermatitis psoriasiform [Not Recovered/Not Resolved]
  - Arthralgia [Not Recovered/Not Resolved]
  - Nail disorder [Not Recovered/Not Resolved]
  - Joint swelling [Not Recovered/Not Resolved]

NARRATIVE: CASE EVENT DATE: 20190124
